FAERS Safety Report 9771321 (Version 2)
Quarter: 2014Q1

REPORT INFORMATION
  Report Type: Report from Study
  Country: US (occurrence: US)
  Receive Date: 20131218
  Receipt Date: 20140107
  Transmission Date: 20141002
  Serious: Yes (Hospitalization)
  Sender: FDA-Public Use
  Company Number: PHEH2013US025765

PATIENT
  Age: 45 Year
  Sex: Female
  Weight: 122.4 kg

DRUGS (13)
  1. GILENYA [Suspect]
     Indication: MULTIPLE SCLEROSIS
     Dosage: 0.5 MG, QD
     Route: 048
     Dates: start: 20130321
  2. FAMOTIDINE [Concomitant]
  3. XANAX [Concomitant]
  4. VICODIN [Concomitant]
  5. PROVIGIL//MODAFINIL [Concomitant]
  6. TOVIAZ [Concomitant]
  7. GLIMEPIRIDE [Concomitant]
  8. PRAVASTATIN [Concomitant]
  9. WELLBUTRIN [Concomitant]
  10. LEXAPRO [Concomitant]
  11. AYGESTIN [Concomitant]
  12. ASPIRIN [Concomitant]
     Dosage: 81 MG, QD
     Route: 048
  13. MIRALAX [Concomitant]
     Indication: CONSTIPATION
     Dosage: 17 G, QD, PRN
     Route: 048

REACTIONS (2)
  - Multiple sclerosis relapse [Recovered/Resolved]
  - Speech disorder [Unknown]
